FAERS Safety Report 20231884 (Version 1)
Quarter: 2021Q4

REPORT INFORMATION
  Report Type: Spontaneous
  Country: US (occurrence: None)
  Receive Date: 20211223
  Receipt Date: 20211223
  Transmission Date: 20220303
  Serious: Yes (Disabling)
  Sender: FDA-Public Use
  Company Number: None

PATIENT
  Age: 60 Year
  Sex: Female
  Weight: 99.9 kg

DRUGS (1)
  1. DOXYCYCLINE [Suspect]
     Active Substance: DOXYCYCLINE
     Indication: Limb injury
     Dosage: OTHER QUANTITY : 1 CAPSULE(S);?FREQUENCY : EVERY 12 HOURS;?
     Route: 048
     Dates: start: 20211202, end: 20211206

REACTIONS (2)
  - Depression [None]
  - Mental disorder [None]

NARRATIVE: CASE EVENT DATE: 20211206
